FAERS Safety Report 9787649 (Version 2)
Quarter: 2013Q4

REPORT INFORMATION
  Report Type: Spontaneous
  Country: JP (occurrence: JP)
  Receive Date: 20131230
  Receipt Date: 20131230
  Transmission Date: 20140711
  Serious: Yes (Other)
  Sender: FDA-Public Use
  Company Number: JP-JNJFOC-20130900507

PATIENT
  Age: 77 Year
  Sex: Female

DRUGS (8)
  1. FINIBAX [Suspect]
     Indication: CELLULITIS
     Route: 041
     Dates: start: 20130305, end: 20130417
  2. FINIBAX [Suspect]
     Indication: CHOLANGITIS
     Route: 041
     Dates: start: 20130305, end: 20130417
  3. ARICEPT D [Suspect]
     Indication: DEMENTIA ALZHEIMER^S TYPE
     Route: 048
     Dates: start: 20130226, end: 20130418
  4. ALFAROL [Concomitant]
     Indication: HYPERPARATHYROIDISM SECONDARY
     Route: 048
     Dates: start: 20130226, end: 20130508
  5. MAINTATE [Concomitant]
     Indication: ATRIAL FIBRILLATION
     Route: 048
     Dates: start: 20121112, end: 20130424
  6. WARFARIN POTASSIUM [Concomitant]
     Indication: ATRIAL FIBRILLATION
     Route: 048
     Dates: start: 20130305, end: 20130429
  7. CINACALCET HYDROCHLORIDE [Concomitant]
     Indication: HYPERPARATHYROIDISM SECONDARY
     Route: 048
     Dates: start: 20130226, end: 20130508
  8. CALCIUM CARBONATE [Concomitant]
     Indication: HYPERPARATHYROIDISM SECONDARY
     Route: 048
     Dates: start: 20130226, end: 20130508

REACTIONS (3)
  - Convulsion [Recovering/Resolving]
  - Blood pressure decreased [Recovered/Resolved]
  - Nausea [Unknown]
